FAERS Safety Report 10268999 (Version 1)
Quarter: 2014Q2

REPORT INFORMATION
  Report Type: Spontaneous
  Country: US (occurrence: US)
  Receive Date: 20140630
  Receipt Date: 20140630
  Transmission Date: 20141212
  Serious: Yes (Hospitalization, Other)
  Sender: FDA-Public Use
  Company Number: US-TEVA-490697USA

PATIENT
  Age: 16 Year
  Sex: Male

DRUGS (7)
  1. CARBAMAZEPINE [Suspect]
     Dosage: 400 MILLIGRAM DAILY;
     Route: 065
  2. PHENYTOIN [Suspect]
     Dosage: 25-100 MG DAILY
     Route: 065
  3. OXCARBAZEPINE [Suspect]
     Dosage: 600MG DAILY
     Route: 065
  4. ZONISAMIDE [Suspect]
     Dosage: 50-200MG DAILY
     Route: 065
  5. LORAZEPAM [Concomitant]
     Dosage: 20-24MG DAILY
     Route: 065
  6. RILUZOLE [Concomitant]
     Dosage: 25-100MG DAILY
     Route: 065
  7. VALPROIC ACID [Concomitant]
     Dosage: 500-1000 MG DAILY
     Route: 065

REACTIONS (2)
  - Aggression [Recovered/Resolved]
  - Thrombocytopenia [Recovering/Resolving]
